FAERS Safety Report 23924812 (Version 1)
Quarter: 2024Q2

REPORT INFORMATION
  Report Type: Spontaneous
  Country: US (occurrence: US)
  Receive Date: 20240531
  Receipt Date: 20240531
  Transmission Date: 20240716
  Serious: No
  Sender: FDA-Public Use
  Company Number: US-HIKMA PHARMACEUTICALS USA INC.-US-H14001-23-63927

PATIENT
  Sex: Female

DRUGS (1)
  1. ACARBOSE [Suspect]
     Active Substance: ACARBOSE
     Indication: Diabetes mellitus
     Dosage: UNKNOWN
     Route: 065

REACTIONS (1)
  - Blood iron abnormal [Unknown]
